FAERS Safety Report 8535868-0 (Version None)
Quarter: 2012Q3

REPORT INFORMATION
  Report Type: 
  Country: None (occurrence: None)
  Receive Date: 20120718
  Receipt Date: 20120718
  Transmission Date: 20120928
  Serious: Yes (Hospitalization)
  Sender: FDA-Public Use
  Company Number: None

PATIENT
  Sex: Male

DRUGS (2)
  1. ZYTIGA [Suspect]
     Indication: PROSTATE CANCER
     Dosage: 4 TABS DAILY PO
     Route: 048
     Dates: start: 20111001, end: 20120701
  2. PREDNISONE [Concomitant]

REACTIONS (6)
  - FALL [None]
  - ALOPECIA [None]
  - GAIT DISTURBANCE [None]
  - EXERCISE TOLERANCE DECREASED [None]
  - MUSCLE ATROPHY [None]
  - FATIGUE [None]
